FAERS Safety Report 7795530-9 (Version None)
Quarter: 2011Q3

REPORT INFORMATION
  Report Type: 
  Country: None (occurrence: None)
  Receive Date: 20110930
  Receipt Date: 20110916
  Transmission Date: 20111222
  Serious: Yes (Hospitalization)
  Sender: FDA-Public Use
  Company Number: EU-2011-10178

PATIENT
  Sex: Female
  Weight: 57 kg

DRUGS (8)
  1. LOSARTAN POTASSIUM [Concomitant]
  2. PRESOMEN COMP (ESTROGENS CONJUGATED, MEDROGESTERONE) [Concomitant]
  3. TORSEMIDE [Concomitant]
  4. SANDOSTATIN [Concomitant]
  5. SPIRIVA [Concomitant]
  6. ALLOPURINOL [Concomitant]
  7. SAMSCA [Suspect]
     Indication: HYPONATRAEMIA
     Dosage: 7.5 MG MILLIGRAM(S), DAILY DOSE, ORAL
     Route: 048
     Dates: start: 20110113
  8. ROCALTROL [Concomitant]

REACTIONS (2)
  - WRONG TECHNIQUE IN DRUG USAGE PROCESS [None]
  - NEPHROTIC SYNDROME [None]
